FAERS Safety Report 21974907 (Version 2)
Quarter: 2024Q2

REPORT INFORMATION
  Report Type: Spontaneous
  Country: US (occurrence: US)
  Receive Date: 20230209
  Receipt Date: 20240605
  Transmission Date: 20240716
  Serious: Yes (Hospitalization, Other)
  Sender: FDA-Public Use
  Company Number: US-BoehringerIngelheim-2023-BI-217906

PATIENT
  Age: 67 Year
  Sex: Female

DRUGS (13)
  1. JARDIANCE [Suspect]
     Active Substance: EMPAGLIFLOZIN
     Indication: Type 2 diabetes mellitus
  2. INVOKANA [Suspect]
     Active Substance: CANAGLIFLOZIN
     Indication: Type 2 diabetes mellitus
  3. HUMALOG [Suspect]
     Active Substance: INSULIN LISPRO
     Indication: Type 2 diabetes mellitus
     Dates: start: 1998
  4. HUMALOG [Suspect]
     Active Substance: INSULIN LISPRO
     Dosage: (RAISED BY 50 UNITS), VIAL
  5. METFORMIN [Suspect]
     Active Substance: METFORMIN HYDROCHLORIDE
     Indication: Type 2 diabetes mellitus
  6. HUMULIN R U-500 KWIKPEN [Suspect]
     Active Substance: INSULIN HUMAN
     Indication: Type 2 diabetes mellitus
     Dosage: 125 UNITS IN THE MORNING
     Dates: start: 202006
  7. HUMULIN R U-500 KWIKPEN [Suspect]
     Active Substance: INSULIN HUMAN
     Dosage: 40 U, (NOON AND AT BED)
  8. HUMULIN R U-500 KWIKPEN [Suspect]
     Active Substance: INSULIN HUMAN
     Dosage: 40 U, (NOON AND AT BED)
     Dates: start: 202006
  9. HUMULIN R U-500 KWIKPEN [Suspect]
     Active Substance: INSULIN HUMAN
     Dosage: 125 U, EACH MORNING
  10. HUMULIN R U-500 KWIKPEN [Suspect]
     Active Substance: INSULIN HUMAN
     Dosage: 40 U, (NOON AND AT BED)
  11. HUMULIN R U-500 KWIKPEN [Suspect]
     Active Substance: INSULIN HUMAN
  12. LEVEMIR [Concomitant]
     Active Substance: INSULIN DETEMIR
     Indication: Product used for unknown indication
  13. HUMULIN R [Concomitant]
     Active Substance: INSULIN HUMAN
     Indication: Product used for unknown indication
     Dates: start: 202006

REACTIONS (13)
  - Thrombotic stroke [Recovering/Resolving]
  - Fall [Recovering/Resolving]
  - Blindness unilateral [Not Recovered/Not Resolved]
  - Renal failure [Not Recovered/Not Resolved]
  - Macular degeneration [Unknown]
  - Eye injury [Not Recovered/Not Resolved]
  - Osteoarthritis [Not Recovered/Not Resolved]
  - Feeling abnormal [Not Recovered/Not Resolved]
  - Blood glucose increased [Not Recovered/Not Resolved]
  - Visual impairment [Not Recovered/Not Resolved]
  - Vision blurred [Not Recovered/Not Resolved]
  - Vomiting [Unknown]
  - Blood glucose decreased [Not Recovered/Not Resolved]

NARRATIVE: CASE EVENT DATE: 20190101
